FAERS Safety Report 17449766 (Version 1)
Quarter: 2020Q1

REPORT INFORMATION
  Report Type: Spontaneous
  Country: US (occurrence: US)
  Receive Date: 20200224
  Receipt Date: 20200224
  Transmission Date: 20200409
  Serious: No
  Sender: FDA-Public Use
  Company Number: US-AJANTA PHARMA USA INC.-2080813

PATIENT
  Sex: Female

DRUGS (1)
  1. ARIPIPRAZOLE (ANDA 206174) [Suspect]
     Active Substance: ARIPIPRAZOLE

REACTIONS (1)
  - Drug ineffective [Unknown]
